FAERS Safety Report 6704265-2 (Version None)
Quarter: 2010Q2

REPORT INFORMATION
  Report Type: 
  Country: None (occurrence: None)
  Receive Date: 20100430
  Receipt Date: 20100419
  Transmission Date: 20101027
  Serious: Yes (Other)
  Sender: FDA-Public Use
  Company Number: US-JNJCH-2010009950

PATIENT
  Age: 54 Year
  Sex: Female
  Weight: 53.5 kg

DRUGS (1)
  1. LISTERINE WHITENING QUICK DISSOLVING STRIPS [Suspect]
     Indication: DENTAL CARE
     Dosage: TEXT:ONE EACH 1-2XS TWICE PER DAY
     Route: 048
     Dates: start: 20100415, end: 20100418

REACTIONS (3)
  - APPLICATION SITE PAIN [None]
  - APPLICATION SITE REACTION [None]
  - PRODUCT QUALITY ISSUE [None]
